FAERS Safety Report 12691523 (Version 2)
Quarter: 2016Q3

REPORT INFORMATION
  Report Type: Other
  Country: PT (occurrence: PT)
  Receive Date: 20160826
  Receipt Date: 20160909
  Transmission Date: 20161109
  Serious: Yes (Hospitalization)
  Sender: FDA-Public Use
  Company Number: PT-UNITED THERAPEUTICS-UNT-2016-011540

PATIENT
  Age: 4 Year
  Sex: Male

DRUGS (12)
  1. UNITUXIN [Suspect]
     Active Substance: DINUTUXIMAB
     Dosage: 17.5 MG/M2/D
     Route: 041
     Dates: start: 20160818, end: 20160821
  2. CLEMASTINE [Concomitant]
     Active Substance: CLEMASTINE
     Indication: PRODUCT USED FOR UNKNOWN INDICATION
  3. UNITUXIN [Suspect]
     Active Substance: DINUTUXIMAB
     Indication: NEUROBLASTOMA
     Dosage: 17.5 MG/M2, UNK
     Route: 041
     Dates: start: 20160718, end: 20160721
  4. INTERLEUKIN-2 [Suspect]
     Active Substance: ALDESLEUKIN
     Indication: NEUROBLASTOMA
     Dosage: UNK
     Route: 041
  5. SARGRAMOSTIM [Concomitant]
     Active Substance: SARGRAMOSTIM
     Indication: PRODUCT USED FOR UNKNOWN INDICATION
  6. GABAPENTINE [Concomitant]
     Active Substance: GABAPENTIN
     Indication: PRODUCT USED FOR UNKNOWN INDICATION
  7. PARACETAMOL [Concomitant]
     Active Substance: ACETAMINOPHEN
     Indication: PRODUCT USED FOR UNKNOWN INDICATION
  8. UNITUXIN [Suspect]
     Active Substance: DINUTUXIMAB
     Dosage: UNK
     Route: 041
     Dates: start: 20160829
  9. INTERLEUKIN-2 [Suspect]
     Active Substance: ALDESLEUKIN
     Dosage: 4.5 MUI/M2
     Route: 041
     Dates: start: 20160829
  10. GRANULOCYTE MACROPHAGE COLONY STIM FACTOR [Suspect]
     Active Substance: GRANULOCYTE-MACROPHAGE COLONY-STIMULATING FACTOR
     Indication: NEUROBLASTOMA
     Route: 041
  11. COTRIMOXAZOL [Concomitant]
     Active Substance: SULFAMETHOXAZOLE\TRIMETHOPRIM
     Indication: PRODUCT USED FOR UNKNOWN INDICATION
     Route: 048
  12. MORPHYNE [Suspect]
     Active Substance: MORPHINE
     Indication: PRODUCT USED FOR UNKNOWN INDICATION

REACTIONS (15)
  - Tachycardia [Recovered/Resolved]
  - Pyrexia [Recovered/Resolved]
  - Diarrhoea [Unknown]
  - Hypoxia [Unknown]
  - Pain in extremity [Unknown]
  - Oliguria [Recovered/Resolved]
  - Somnolence [Recovered/Resolved]
  - Decreased appetite [Unknown]
  - Bronchospasm [Unknown]
  - Hypotension [Unknown]
  - Weight increased [Unknown]
  - Eyelid oedema [Recovered/Resolved]
  - Injection site inflammation [Unknown]
  - Livedo reticularis [Recovered/Resolved]
  - Chills [Recovered/Resolved]

NARRATIVE: CASE EVENT DATE: 20160718
